FAERS Safety Report 5748247-6 (Version None)
Quarter: 2008Q2

REPORT INFORMATION
  Report Type: 
  Country: None (occurrence: None)
  Receive Date: 20080523
  Receipt Date: 20080514
  Transmission Date: 20081010
  Serious: Yes (Other)
  Sender: FDA-Public Use
  Company Number: US-PFIZER INC-2005168804

PATIENT
  Sex: Male
  Weight: 77.1 kg

DRUGS (6)
  1. LYRICA [Suspect]
     Indication: POST HERPETIC NEURALGIA
     Route: 048
     Dates: start: 20050101, end: 20051214
  2. NEURONTIN [Suspect]
     Indication: ILL-DEFINED DISORDER
     Dosage: TEXT:UNKNOWN-FREQ:UNKNOWN
     Route: 065
  3. TRILEPTAL [Suspect]
     Indication: ILL-DEFINED DISORDER
  4. TOPAMAX [Suspect]
     Indication: ILL-DEFINED DISORDER
     Dosage: TEXT:UNKNOWN-FREQ:UNKNOWN
     Route: 065
  5. LAMICTAL [Suspect]
     Indication: ILL-DEFINED DISORDER
     Dosage: TEXT:UNKNOWN-FREQ:UNKNOWN
     Route: 065
  6. DURAGESIC-100 [Concomitant]
     Route: 062

REACTIONS (18)
  - DEAFNESS [None]
  - DIARRHOEA [None]
  - DIZZINESS [None]
  - DRUG HYPERSENSITIVITY [None]
  - DRUG INEFFECTIVE [None]
  - DRUG INTOLERANCE [None]
  - DYSPNOEA [None]
  - EAR PAIN [None]
  - HEADACHE [None]
  - HEART RATE INCREASED [None]
  - HYPERSENSITIVITY [None]
  - HYPOACUSIS [None]
  - PARAESTHESIA [None]
  - PERIPHERAL COLDNESS [None]
  - RETCHING [None]
  - THROAT TIGHTNESS [None]
  - THROMBOCYTOPENIC PURPURA [None]
  - TINNITUS [None]
